FAERS Safety Report 15012705 (Version 3)
Quarter: 2018Q4

REPORT INFORMATION
  Report Type: Report from Study
  Country: JP (occurrence: JP)
  Receive Date: 20180614
  Receipt Date: 20181129
  Transmission Date: 20190204
  Serious: Yes (Hospitalization)
  Sender: FDA-Public Use
  Company Number: JP-009507513-1804JPN000954J

PATIENT
  Age: 80 Year
  Sex: Male
  Weight: 49 kg

DRUGS (1)
  1. KEYTRUDA [Suspect]
     Active Substance: PEMBROLIZUMAB
     Indication: BLADDER TRANSITIONAL CELL CARCINOMA
     Dosage: 200 MILLIGRAM, Q3W
     Route: 041
     Dates: start: 20180326, end: 20180326

REACTIONS (6)
  - Myalgia [Recovered/Resolved]
  - Urinary tract infection [Recovered/Resolved]
  - Gait disturbance [Unknown]
  - Hypoaesthesia [Unknown]
  - Muscular weakness [Recovered/Resolved]
  - Myalgia [Recovering/Resolving]

NARRATIVE: CASE EVENT DATE: 20180326
